FAERS Safety Report 5035112-5 (Version None)
Quarter: 2006Q2

REPORT INFORMATION
  Report Type: 
  Country: None (occurrence: None)
  Receive Date: 20060622
  Receipt Date: 20060622
  Transmission Date: 20061013
  Serious: Yes (Life-Threatening, Hospitalization, Other)
  Sender: FDA-Public Use
  Company Number: None

PATIENT
  Age: 32 Year
  Sex: Female
  Weight: 54.4316 kg

DRUGS (1)
  1. ORTHO EVRA [Suspect]
     Dosage: ONE PATCH 1 PATCH /WEEK TRANSDERMAL OTHER
     Route: 062
     Dates: start: 20050726, end: 20050728

REACTIONS (1)
  - PULMONARY EMBOLISM [None]
